FAERS Safety Report 5893008-0 (Version None)
Quarter: 2008Q3

REPORT INFORMATION
  Report Type: 
  Country: None (occurrence: None)
  Receive Date: 20080923
  Receipt Date: 20070629
  Transmission Date: 20090109
  Serious: No
  Sender: FDA-Public Use
  Company Number: US-ASTRAZENECA-2007UW07539

PATIENT
  Age: 38 Year
  Sex: Male
  Weight: 79.5 kg

DRUGS (10)
  1. SEROQUEL [Suspect]
     Indication: SCHIZOPHRENIA
     Dosage: 100 - 800 MG
     Route: 048
     Dates: start: 19980101
  2. SEROQUEL [Suspect]
     Indication: BIPOLAR DISORDER
     Dosage: 100 - 800 MG
     Route: 048
     Dates: start: 19980101
  3. ABILIFY [Concomitant]
     Dates: start: 19920101, end: 20070101
  4. GEODON [Concomitant]
     Dates: start: 19920101, end: 20070101
  5. HALDOL [Concomitant]
     Dates: start: 19920101, end: 20070101
  6. NAVANE [Concomitant]
     Dates: start: 19920101, end: 20070101
  7. RISPERDAL [Concomitant]
     Dates: start: 19920101, end: 20070101
  8. STELAZINE [Concomitant]
     Dates: start: 19920101, end: 20070101
  9. THORAZINE [Concomitant]
     Dates: start: 19920101, end: 20070101
  10. ZYPREXA [Concomitant]
     Dates: start: 19920101, end: 20070101

REACTIONS (4)
  - BLOOD CHOLESTEROL INCREASED [None]
  - DIABETES MELLITUS [None]
  - OBESITY [None]
  - VISUAL ACUITY REDUCED [None]
